FAERS Safety Report 15864343 (Version 1)
Quarter: 2019Q1

REPORT INFORMATION
  Report Type: Spontaneous
  Country: US (occurrence: US)
  Receive Date: 20190109
  Receipt Date: 20190109
  Transmission Date: 20190417
  Serious: No
  Sender: FDA-Public Use
  Company Number: None

PATIENT
  Age: 63 Year
  Sex: Female

DRUGS (1)
  1. MAVYRET [Suspect]
     Active Substance: GLECAPREVIR\PIBRENTASVIR
     Indication: HEPATITIS C
     Route: 048
     Dates: start: 201812

REACTIONS (4)
  - Head discomfort [None]
  - Influenza [None]
  - Respiratory tract congestion [None]
  - Oropharyngeal pain [None]

NARRATIVE: CASE EVENT DATE: 20190104
